FAERS Safety Report 7161716-X (Version None)
Quarter: 2010Q4

REPORT INFORMATION
  Report Type: 
  Country: None (occurrence: None)
  Receive Date: 20101215
  Receipt Date: 20101213
  Transmission Date: 20110411
  Serious: Yes (Death, Hospitalization)
  Sender: FDA-Public Use
  Company Number: GB-SANOFI-AVENTIS-2010SA075364

PATIENT
  Age: 79 Year
  Sex: Male

DRUGS (6)
  1. TAXOTERE [Suspect]
     Indication: PROSTATE CANCER
     Route: 042
     Dates: start: 20081001, end: 20081001
  2. TAXOTERE [Suspect]
     Route: 042
     Dates: start: 20090120, end: 20090120
  3. GOSERELIN [Concomitant]
  4. HYDROCORTISONE [Concomitant]
  5. STILBOESTROL [Concomitant]
  6. WARFARIN SODIUM [Concomitant]

REACTIONS (8)
  - ARTHRALGIA [None]
  - ASTHENIA [None]
  - DEATH [None]
  - DIARRHOEA [None]
  - FALL [None]
  - FATIGUE [None]
  - MOBILITY DECREASED [None]
  - NEUTROPENIA [None]
